FAERS Safety Report 18139120 (Version 1)
Quarter: 2020Q3

REPORT INFORMATION
  Report Type: Spontaneous
  Country: US (occurrence: US)
  Receive Date: 20200811
  Receipt Date: 20200811
  Transmission Date: 20201103
  Serious: No
  Sender: FDA-Public Use
  Company Number: None

PATIENT
  Age: 49 Year
  Sex: Female

DRUGS (2)
  1. SILDENAFIL TAB 20MG [Suspect]
     Active Substance: SILDENAFIL
     Indication: PULMONARY ARTERIAL HYPERTENSION
     Route: 048
     Dates: start: 201912
  2. AMBRISENTAN [Suspect]
     Active Substance: AMBRISENTAN

REACTIONS (2)
  - Urinary tract infection [None]
  - Vaginal haemorrhage [None]

NARRATIVE: CASE EVENT DATE: 20200807
